FAERS Safety Report 19275469 (Version 1)
Quarter: 2021Q2

REPORT INFORMATION
  Report Type: Spontaneous
  Country: US (occurrence: US)
  Receive Date: 20210519
  Receipt Date: 20210519
  Transmission Date: 20210717
  Serious: Yes (Other)
  Sender: FDA-Public Use
  Company Number: US-MYLANLABS-2021M1029370

PATIENT
  Age: 6 Decade
  Sex: Female

DRUGS (4)
  1. CISPLATIN. [Suspect]
     Active Substance: CISPLATIN
     Indication: INVASIVE BREAST CARCINOMA
     Dosage: UNK UNK, CYCLE, SHE RECEIVED 22 CYCLES OF THE INVESTIGATIONAL DRUG COMBINATION FOR 19 MONTHS
     Route: 065
     Dates: start: 201710
  2. GEMCITABINE. [Suspect]
     Active Substance: GEMCITABINE
     Indication: INVASIVE BREAST CARCINOMA
     Dosage: UNK UNK, CYCLE SHE RECEIVED 22 CYCLES OF THE INVESTIGATIONAL DRUG COMBINATION FOR 19 MONTHS
     Route: 065
     Dates: start: 201710
  3. GEMCITABINE. [Suspect]
     Active Substance: GEMCITABINE
     Indication: HORMONE RECEPTOR POSITIVE HER2 NEGATIVE BREAST CANCER
  4. CISPLATIN. [Suspect]
     Active Substance: CISPLATIN
     Indication: HORMONE RECEPTOR POSITIVE HER2 NEGATIVE BREAST CANCER

REACTIONS (2)
  - Thrombocytopenia [Unknown]
  - Hypoacusis [Unknown]
